FAERS Safety Report 5529676-2 (Version None)
Quarter: 2007Q4

REPORT INFORMATION
  Report Type: 
  Country: None (occurrence: None)
  Receive Date: 20071129
  Receipt Date: 20071116
  Transmission Date: 20080405
  Serious: Yes (Other)
  Sender: FDA-Public Use
  Company Number: JP-GENENTECH-248668

PATIENT
  Sex: Male

DRUGS (4)
  1. BEVACIZUMAB [Suspect]
     Indication: COLON CANCER
     Dosage: 325 MG, UNK
     Route: 041
     Dates: start: 20061214
  2. OXALIPLATIN [Suspect]
     Indication: COLON CANCER
     Dosage: 149 MG, UNK
     Route: 041
     Dates: start: 20061214, end: 20070723
  3. FLUOROURACIL [Suspect]
     Indication: COLON CANCER
     Dosage: 701 MG, UNK
     Dates: start: 20061214
  4. ISOVORIN [Suspect]
     Indication: COLON CANCER
     Dosage: 175 MG, UNK
     Route: 041
     Dates: start: 20061214

REACTIONS (2)
  - HYPERSENSITIVITY [None]
  - HYPERTENSION [None]
